FAERS Safety Report 23386633 (Version 1)
Quarter: 2024Q1

REPORT INFORMATION
  Report Type: Spontaneous
  Country: SE (occurrence: SE)
  Receive Date: 20240110
  Receipt Date: 20240110
  Transmission Date: 20240410
  Serious: Yes (Death)
  Sender: FDA-Public Use
  Company Number: None

PATIENT
  Age: 35 Year

DRUGS (26)
  1. OXYCODONE HYDROCHLORIDE [Suspect]
     Active Substance: OXYCODONE HYDROCHLORIDE
     Indication: Pain
     Dosage: TIME INTERVAL: 1 AS NECESSARY: 1 TABLET IF NEEDED 2 TIMES DAILY FOR 2 WEEKS
     Route: 048
     Dates: start: 20180101, end: 20230425
  2. CYMBALTA [Concomitant]
     Active Substance: DULOXETINE HYDROCHLORIDE
     Dates: start: 20201021
  3. CYMBALTA [Concomitant]
     Active Substance: DULOXETINE HYDROCHLORIDE
     Dates: start: 20201021
  4. ALBUTEROL SULFATE [Concomitant]
     Active Substance: ALBUTEROL SULFATE
     Dates: start: 20211105
  5. IBUPROFEN [Concomitant]
     Active Substance: IBUPROFEN
     Dosage: ALSO SPECIFIED IF NECESSARY
     Dates: start: 20220225
  6. ORLISTAT STADA [Concomitant]
     Dosage: 1-3 TIMES/DAY
     Dates: start: 20221015
  7. CALCIUM CARBONATE [Concomitant]
     Active Substance: CALCIUM CARBONATE
     Dates: start: 20171127
  8. MOMETASONE [Concomitant]
     Active Substance: MOMETASONE
     Dosage: TIME INTERVAL: 1 AS NECESSARY: 1-2 SPRAYS IF NECESSARY, MAX. 2 SPRAYS/DAY?IN EACH NOSTRIL
     Route: 045
     Dates: start: 20190531
  9. MOMETASONE [Concomitant]
     Active Substance: MOMETASONE
     Dosage: TIME INTERVAL: 1 AS NECESSARY: 1-2 SPRAYS IF NECESSARY, MAX. 2 SPRAYS/DAY?IN EACH NOSTRIL
     Route: 045
     Dates: start: 20190531
  10. SUMATRIPTAN BLUEFISH [Concomitant]
     Dosage: TIME INTERVAL: 1 AS NECESSARY: 1 TABLET IF NEEDED, MAX 2 TABLETS IF NEEDED
     Dates: start: 20221102
  11. SUMATRIPTAN BLUEFISH [Concomitant]
     Dosage: TIME INTERVAL: 1 AS NECESSARY: 1 TABLET IF NEEDED, MAX 2 TABLETS IF NEEDED
     Dates: start: 20221102
  12. ALBUTEROL SULFATE [Concomitant]
     Active Substance: ALBUTEROL SULFATE
     Dosage: TIME INTERVAL: 1 AS NECESSARY: 1-2 INHALATIONS AS NEEDED
     Dates: start: 20221116
  13. MOMETASONE FUROATE [Concomitant]
     Active Substance: MOMETASONE FUROATE
     Dates: start: 20211203
  14. ESOMEPRAZOLE [Concomitant]
     Active Substance: ESOMEPRAZOLE
     Route: 042
     Dates: start: 20230203
  15. CHLORZOXAZONE [Suspect]
     Active Substance: CHLORZOXAZONE
     Indication: Muscle relaxant therapy
     Dosage: TIME INTERVAL: 1 AS NECESSARY: 1-2X3 IF NECESSARY
     Route: 048
     Dates: start: 20180403, end: 20230425
  16. OMEPRAZOLE [Concomitant]
     Active Substance: OMEPRAZOLE
     Dates: start: 20180403
  17. PROPIOMAZINE [Concomitant]
     Active Substance: PROPIOMAZINE
     Dosage: TIME INTERVAL: 1 AS NECESSARY: 1-2 TABLETS AT NIGHT IF NECESSARY
     Dates: start: 20230419
  18. ACETAMINOPHEN [Concomitant]
     Active Substance: ACETAMINOPHEN
     Dosage: 1-2 X 4
     Dates: start: 20220112
  19. LEVOMEPROMAZINE MALEATE [Concomitant]
     Active Substance: LEVOMEPROMAZINE MALEATE
     Dosage: TIME INTERVAL: 1 AS NECESSARY: 1 TABLET IF NEEDED, MAX 2 TABLETS/DAY
     Dates: start: 20221206
  20. DESLORATADINE [Concomitant]
     Active Substance: DESLORATADINE
     Dosage: TIME INTERVAL: 1 AS NECESSARY: 1 TABLET 1-2 TIMES/DAY IF NEEDED
     Dates: start: 20191212
  21. DEPO-PROVERA [Concomitant]
     Active Substance: MEDROXYPROGESTERONE ACETATE
     Route: 030
     Dates: start: 20171126
  22. CALCIUM CARBONATE\CHOLECALCIFEROL [Concomitant]
     Active Substance: CALCIUM CARBONATE\CHOLECALCIFEROL
     Route: 065
     Dates: start: 20171130
  23. CALCIUM CARBONATE\CHOLECALCIFEROL [Concomitant]
     Active Substance: CALCIUM CARBONATE\CHOLECALCIFEROL
     Route: 065
     Dates: start: 20171130
  24. LOMUDAL [Concomitant]
     Dosage: TIME INTERVAL: 1 AS NECESSARY: 1-2 DROPS IF NEEDED, MAX 2 DROPS/24 HOURS?IN EACH EYE
     Dates: start: 20190531
  25. PREGABALIN [Concomitant]
     Active Substance: PREGABALIN
     Route: 065
     Dates: start: 20230417
  26. Folic acid Evolan [Concomitant]
     Dates: start: 20190211

REACTIONS (4)
  - Sudden cardiac death [Fatal]
  - Cardiac arrest [Fatal]
  - Toxicity to various agents [Fatal]
  - Accidental overdose [Fatal]

NARRATIVE: CASE EVENT DATE: 20230425
